FAERS Safety Report 9737038 (Version 2)
Quarter: 2013Q4

REPORT INFORMATION
  Report Type: Spontaneous
  Country: US (occurrence: US)
  Receive Date: 20131206
  Receipt Date: 20131206
  Transmission Date: 20140711
  Serious: No
  Sender: FDA-Public Use
  Company Number: US-GILEAD-2009-0023850

PATIENT
  Sex: Female
  Weight: 111.58 kg

DRUGS (17)
  1. LETAIRIS [Suspect]
     Indication: PULMONARY ARTERIAL HYPERTENSION
     Route: 048
  2. MULTIPLE MINERALS [Concomitant]
  3. EXCEDRIN [Concomitant]
  4. LORTAB [Concomitant]
  5. LASIX [Concomitant]
  6. POTASSIUM CHLORIDE [Concomitant]
  7. IRON [Concomitant]
  8. FLUOXETINE [Concomitant]
  9. DYAZIDE [Concomitant]
  10. NORVASC [Concomitant]
  11. DAILY MULTIVITAMIN [Concomitant]
  12. PROBIOTIC COMPLEX [Concomitant]
  13. CARDI-OMEGA 3 [Concomitant]
  14. ZOCOR [Concomitant]
  15. OS-CAL 500MG +D [Concomitant]
  16. PRILOSEC [Concomitant]
  17. VITAMIN C [Concomitant]

REACTIONS (2)
  - Renal failure [Unknown]
  - Palpitations [Unknown]
